FAERS Safety Report 9247042 (Version 3)
Quarter: 2015Q4

REPORT INFORMATION
  Report Type: Spontaneous
  Country: AU (occurrence: AU)
  Receive Date: 20130423
  Receipt Date: 20151021
  Transmission Date: 20160305
  Serious: Yes (Hospitalization, Other)
  Sender: FDA-Public Use
  Company Number: AU-AMGEN-AUSSP2013026077

PATIENT
  Age: 80 Year
  Sex: Female
  Weight: 48 kg

DRUGS (15)
  1. LOPERAMIDE [Concomitant]
     Active Substance: LOPERAMIDE
  2. METOPROLOL [Concomitant]
     Active Substance: METOPROLOL
  3. PARACETAMOL [Concomitant]
     Active Substance: ACETAMINOPHEN
  4. PREDNISOLONE. [Concomitant]
     Active Substance: PREDNISOLONE
  5. ESOMEPRAZOLE [Concomitant]
     Active Substance: ESOMEPRAZOLE
  6. VITAMIN B12 [Concomitant]
     Active Substance: CYANOCOBALAMIN
  7. PANCREATIC ENZYMES [Concomitant]
     Active Substance: UNSPECIFIED INGREDIENT
  8. CALCIUM CITRATE [Concomitant]
     Active Substance: CALCIUM CITRATE
  9. CODEINE [Concomitant]
     Active Substance: CODEINE
  10. XALATAN [Concomitant]
     Active Substance: LATANOPROST
  11. PREGABALIN. [Concomitant]
     Active Substance: PREGABALIN
  12. ASPIRIN. [Concomitant]
     Active Substance: ASPIRIN
  13. IRON [Suspect]
     Active Substance: IRON
     Indication: PRODUCT USED FOR UNKNOWN INDICATION
     Route: 042
  14. PROLIA [Suspect]
     Active Substance: DENOSUMAB
     Indication: PRODUCT USED FOR UNKNOWN INDICATION
     Dosage: UNK UNK, QD
     Route: 058
     Dates: start: 20120901
  15. LUCENTIS [Concomitant]
     Active Substance: RANIBIZUMAB

REACTIONS (12)
  - Localised infection [Unknown]
  - Hypokalaemia [Unknown]
  - Hypoalbuminaemia [Unknown]
  - Malaise [Unknown]
  - Hypocalcaemia [Not Recovered/Not Resolved]
  - Blood magnesium decreased [Unknown]
  - Asthenia [Not Recovered/Not Resolved]
  - Paraesthesia [Unknown]
  - Hypophosphataemia [Unknown]
  - Malnutrition [Unknown]
  - Sepsis [Unknown]
  - Inflammatory bowel disease [Not Recovered/Not Resolved]

NARRATIVE: CASE EVENT DATE: 20121101
